FAERS Safety Report 16594662 (Version 1)
Quarter: 2019Q3

REPORT INFORMATION
  Report Type: Spontaneous
  Country: DE (occurrence: DE)
  Receive Date: 20190718
  Receipt Date: 20190718
  Transmission Date: 20191004
  Serious: Yes (Hospitalization)
  Sender: FDA-Public Use
  Company Number: DE-TEVA-2019-DE-1077457

PATIENT
  Age: 80 Year
  Sex: Female

DRUGS (9)
  1. LEVODOPA/BENSERAZID [Suspect]
     Active Substance: BENSERAZIDE\LEVODOPA
     Dosage: 100|125 MG, 0-1-0-1
     Route: 065
  2. FENTANYL. [Suspect]
     Active Substance: FENTANYL
     Dosage: 12.5MICROGRAM, CHANGE EVERY 3 DAYS, PATCH TRANSDERMALLY
     Route: 062
  3. VENLAFAXIN [Suspect]
     Active Substance: VENLAFAXINE HYDROCHLORIDE
     Dosage: 75 MG, 0-0-1-0
     Route: 065
  4. AMITRIPTYLIN [Suspect]
     Active Substance: AMITRIPTYLINE
     Dosage: 25 MG, 0-1-0-0
     Route: 065
  5. METAMIZOL [Concomitant]
     Active Substance: METAMIZOLE SODIUM
     Dosage: 500 MG, NEED
  6. PANTOPRAZOL [Concomitant]
     Active Substance: PANTOPRAZOLE SODIUM
     Dosage: 40 MG, NEED
  7. VENLAFAXIN [Suspect]
     Active Substance: VENLAFAXINE HYDROCHLORIDE
     Dosage: 150 MG, 1-0-0-0
     Route: 065
  8. PIPAMPERONE [Suspect]
     Active Substance: PIPAMPERONE
     Dosage: 40 MG, 0-0-0-1
     Route: 065
  9. AMLODIPIN [Concomitant]
     Active Substance: AMLODIPINE BESYLATE
     Dosage: 5 MG, 0-0-1-0

REACTIONS (3)
  - Tremor [Unknown]
  - Gait disturbance [Unknown]
  - Product prescribing error [Unknown]

NARRATIVE: CASE EVENT DATE: 20171001
